FAERS Safety Report 7988260-1 (Version None)
Quarter: 2011Q4

REPORT INFORMATION
  Report Type: 
  Country: None (occurrence: None)
  Receive Date: 20111216
  Receipt Date: 20110419
  Transmission Date: 20120403
  Serious: No
  Sender: FDA-Public Use
  Company Number: US-ABBOTT-11P-163-0804358-00

PATIENT
  Age: 65 Year
  Sex: Female
  Weight: 67.272 kg

DRUGS (2)
  1. CALCITONIN, SALMON [Concomitant]
     Indication: OSTEOPOROSIS
     Dosage: DAILY DOSE:  UNKNOWN
     Route: 065
  2. PROGESTERONE [Suspect]
     Indication: HORMONE REPLACEMENT THERAPY
     Dosage: DAILY DOSE: 100 MILLIGRAM(S)
     Route: 048
     Dates: start: 20090101

REACTIONS (3)
  - EYE SWELLING [None]
  - PRODUCT QUALITY ISSUE [None]
  - PRURITUS [None]
